FAERS Safety Report 13078426 (Version 4)
Quarter: 2017Q3

REPORT INFORMATION
  Report Type: Report from Study
  Country: JP (occurrence: JP)
  Receive Date: 20170102
  Receipt Date: 20170717
  Transmission Date: 20171127
  Serious: Yes (Hospitalization)
  Sender: FDA-Public Use
  Company Number: JP-JNJFOC-20161224444

PATIENT
  Age: 2 Month
  Sex: Male
  Weight: 5.2 kg

DRUGS (9)
  1. NONTHRON [Concomitant]
     Indication: COAGULATION FACTOR DECREASED
     Route: 042
     Dates: start: 20160309, end: 20160313
  2. REMICADE [Suspect]
     Active Substance: INFLIXIMAB
     Indication: KAWASAKI^S DISEASE
     Route: 042
     Dates: start: 20160308, end: 20160308
  3. ASPIRIN. [Concomitant]
     Active Substance: ASPIRIN
     Indication: KAWASAKI^S DISEASE
     Route: 048
     Dates: start: 20160317
  4. HUMAN NORMAL IMMUNOGLOBULIN [Concomitant]
     Active Substance: HUMAN IMMUNOGLOBULIN G
     Indication: KAWASAKI^S DISEASE
     Route: 042
     Dates: start: 20160314, end: 20160315
  5. ASPIRIN. [Concomitant]
     Active Substance: ASPIRIN
     Indication: KAWASAKI^S DISEASE
     Route: 048
     Dates: start: 20160318
  6. LASIX [Concomitant]
     Active Substance: FUROSEMIDE
     Indication: URINE OUTPUT DECREASED
     Route: 042
     Dates: start: 20160310
  7. SOLDACTONE [Concomitant]
     Active Substance: CANRENOATE POTASSIUM
     Indication: URINE OUTPUT DECREASED
     Route: 042
     Dates: start: 20160310
  8. ALBUMINAR [Concomitant]
     Active Substance: ALBUMIN HUMAN
     Indication: KAWASAKI^S DISEASE
     Dosage: 1 DOSAGE FORM ONCE A DAY
     Route: 042
     Dates: start: 20160309, end: 20160313
  9. ACETAMINOPHEN. [Concomitant]
     Active Substance: ACETAMINOPHEN
     Indication: KAWASAKI^S DISEASE
     Dosage: WHEN NECESSARY
     Route: 054
     Dates: start: 20160309, end: 20160310

REACTIONS (6)
  - Insomnia [Recovered/Resolved]
  - Pneumonia [Recovered/Resolved]
  - Nasopharyngitis [Recovered/Resolved]
  - Hypokalaemia [Recovered/Resolved]
  - Constipation [Recovered/Resolved]
  - Hyponatraemia [Recovered/Resolved]

NARRATIVE: CASE EVENT DATE: 20160309
